FAERS Safety Report 17010759 (Version 1)
Quarter: 2019Q4

REPORT INFORMATION
  Report Type: Spontaneous
  Country: US (occurrence: US)
  Receive Date: 20191107
  Receipt Date: 20191107
  Transmission Date: 20200122
  Serious: Yes (Life-Threatening, Other)
  Sender: FDA-Public Use
  Company Number: None

PATIENT
  Age: 28 Year
  Sex: Female
  Weight: 42.75 kg

DRUGS (3)
  1. PROBIOTICS [Concomitant]
     Active Substance: PROBIOTICS NOS
  2. CLINDAMYCIN. [Suspect]
     Active Substance: CLINDAMYCIN
     Indication: INFECTION PROPHYLAXIS
     Dates: start: 20190927, end: 20191004
  3. VANCOMYCIN [Concomitant]
     Active Substance: VANCOMYCIN

REACTIONS (4)
  - Diarrhoea [None]
  - Apparent life threatening event [None]
  - Dehydration [None]
  - Clostridium difficile infection [None]

NARRATIVE: CASE EVENT DATE: 20191025
